FAERS Safety Report 5919559-8 (Version None)
Quarter: 2008Q4

REPORT INFORMATION
  Report Type: 
  Country: None (occurrence: None)
  Receive Date: 20081015
  Receipt Date: 20080409
  Transmission Date: 20090506
  Serious: No
  Sender: FDA-Public Use
  Company Number: US-BRISTOL-MYERS SQUIBB COMPANY-13954946

PATIENT
  Sex: Female
  Weight: 159 kg

DRUGS (5)
  1. KENALOG-40 [Suspect]
     Indication: PAIN IN EXTREMITY
     Dosage: 1 DOSAGE FORM =1/2CC OF KENALOG 40 MG INJ.
  2. MARCAINE [Concomitant]
  3. CALCIUM [Concomitant]
  4. VITAMIN D2 [Concomitant]
  5. VIVELLE [Concomitant]

REACTIONS (6)
  - ARTHRALGIA [None]
  - FATIGUE [None]
  - HEADACHE [None]
  - MUSCULAR WEAKNESS [None]
  - NAUSEA [None]
  - STOMATITIS [None]
